FAERS Safety Report 20032126 (Version 1)
Quarter: 2021Q4

REPORT INFORMATION
  Report Type: Spontaneous
  Country: US (occurrence: US)
  Receive Date: 20211103
  Receipt Date: 20211103
  Transmission Date: 20220303
  Serious: No
  Sender: FDA-Public Use
  Company Number: US-JNJFOC-20211047580

PATIENT
  Age: 70 Year
  Sex: Female

DRUGS (1)
  1. ZYRTEC [Suspect]
     Active Substance: CETIRIZINE HYDROCHLORIDE
     Indication: Pruritus
     Dosage: 1 CAP ONCE IN 2 DAYS
     Route: 065
     Dates: start: 20211020

REACTIONS (2)
  - Product used for unknown indication [Unknown]
  - Off label use [Unknown]

NARRATIVE: CASE EVENT DATE: 20211020
